FAERS Safety Report 5721110-2 (Version None)
Quarter: 2008Q2

REPORT INFORMATION
  Report Type: 
  Country: None (occurrence: None)
  Receive Date: 20080429
  Receipt Date: 20080415
  Transmission Date: 20081010
  Serious: Yes (Hospitalization, Congenital Anomaly)
  Sender: FDA-Public Use
  Company Number: A0693645A

PATIENT
  Sex: Male

DRUGS (13)
  1. PAXIL [Suspect]
     Indication: HEADACHE
     Dosage: 20MG PER DAY
     Dates: start: 20010915, end: 20020128
  2. VITAMIN TAB [Concomitant]
  3. LASIX [Concomitant]
     Dates: start: 20020101
  4. ALDACTONE [Concomitant]
     Indication: PLEURAL EFFUSION
  5. CAPTOPRIL [Concomitant]
     Dosage: 12.5MG TWICE PER DAY
  6. ENALAPRIL MALEATE [Concomitant]
     Dosage: 2.5MG TWICE PER DAY
  7. ZAROXOLYN [Concomitant]
  8. REGLAN [Concomitant]
     Indication: NAUSEA
  9. AMOXICILLIN [Concomitant]
     Indication: OFFICE VISIT
  10. ZOLOFT [Concomitant]
     Dates: start: 20020315, end: 20020329
  11. DIGOXIN [Concomitant]
  12. MULTI VITAMINS WITH IRON [Concomitant]
  13. ASPIRIN [Concomitant]

REACTIONS (32)
  - ABNORMAL BEHAVIOUR [None]
  - ANXIETY [None]
  - AORTIC VALVE INCOMPETENCE [None]
  - ATELECTASIS [None]
  - ATRIAL SEPTAL DEFECT [None]
  - CARDIAC MURMUR [None]
  - CLUBBING [None]
  - CONGENITAL CARDIOVASCULAR ANOMALY [None]
  - CYANOSIS [None]
  - DIAPHRAGMATIC PARALYSIS [None]
  - DILATATION ATRIAL [None]
  - DRUG EXPOSURE DURING PREGNANCY [None]
  - DYSPNOEA [None]
  - EMOTIONAL DISORDER [None]
  - HEART DISEASE CONGENITAL [None]
  - HEPATOMEGALY [None]
  - HYPOPLASTIC LEFT HEART SYNDROME [None]
  - HYPOXIA [None]
  - LETHARGY [None]
  - LUNG DISORDER [None]
  - MITRAL VALVE INCOMPETENCE [None]
  - OXYGEN SATURATION DECREASED [None]
  - PATENT DUCTUS ARTERIOSUS [None]
  - PLEURAL EFFUSION [None]
  - PULMONARY OEDEMA [None]
  - PULMONARY VALVE STENOSIS [None]
  - QRS AXIS ABNORMAL [None]
  - TRANSPOSITION OF THE GREAT VESSELS [None]
  - TRICUSPID VALVE INCOMPETENCE [None]
  - VENTRICULAR HYPERTROPHY [None]
  - VENTRICULAR SEPTAL DEFECT [None]
  - VIRAL SKIN INFECTION [None]
